FAERS Safety Report 8167094-1 (Version None)
Quarter: 2012Q1

REPORT INFORMATION
  Report Type: 
  Country: None (occurrence: None)
  Receive Date: 20120227
  Receipt Date: 20120222
  Transmission Date: 20120608
  Serious: Yes (Death, Hospitalization)
  Sender: FDA-Public Use
  Company Number: DE-JNJFOC-20120210586

PATIENT
  Age: 85 Year
  Sex: Male

DRUGS (9)
  1. DIPIPERON [Suspect]
     Route: 048
     Dates: start: 20110727, end: 20110803
  2. RISPERDAL [Suspect]
     Route: 048
     Dates: start: 20110722, end: 20110726
  3. RISPERDAL [Suspect]
     Route: 048
     Dates: start: 20110810, end: 20110824
  4. RISPERDAL [Suspect]
     Indication: PRODUCT USED FOR UNKNOWN INDICATION
     Route: 048
     Dates: start: 20110720, end: 20110721
  5. RISPERDAL [Suspect]
     Route: 048
     Dates: start: 20110803, end: 20110809
  6. ASPIRIN [Concomitant]
     Route: 048
     Dates: end: 20110824
  7. DIPIPERON [Suspect]
     Indication: PRODUCT USED FOR UNKNOWN INDICATION
     Route: 048
     Dates: start: 20110722, end: 20110726
  8. DIPIPERON [Suspect]
     Route: 048
     Dates: start: 20110820, end: 20110824
  9. RISPERDAL [Suspect]
     Route: 048
     Dates: start: 20110727, end: 20110802

REACTIONS (2)
  - ARRHYTHMIA [None]
  - DEATH [None]
